FAERS Safety Report 4334606-5 (Version None)
Quarter: 2004Q2

REPORT INFORMATION
  Report Type: 
  Country: None (occurrence: None)
  Receive Date: 20040407
  Receipt Date: 20030423
  Transmission Date: 20050107
  Serious: Yes (Hospitalization, Other)
  Sender: FDA-Public Use
  Company Number: ES-MERCK-0304ESP00020

PATIENT
  Age: 52 Year
  Sex: Female
  Weight: 60 kg

DRUGS (4)
  1. DESLORATADINE [Concomitant]
     Route: 065
  2. DEXCHLORPHENIRAMINE MALEATE [Concomitant]
     Route: 065
  3. VIOXX [Suspect]
     Indication: PAIN
     Route: 048
     Dates: start: 20030213, end: 20030309
  4. VIOXX [Suspect]
     Indication: ARTHRITIS BACTERIAL
     Route: 048
     Dates: start: 20030213, end: 20030309

REACTIONS (12)
  - BLOOD SODIUM DECREASED [None]
  - CHROMATURIA [None]
  - FAECES DISCOLOURED [None]
  - HAEMATOCRIT DECREASED [None]
  - HAEMOGLOBIN DECREASED [None]
  - HEPATITIS TOXIC [None]
  - MUSCLE RUPTURE [None]
  - NEPHROPATHY TOXIC [None]
  - NERVE COMPRESSION [None]
  - PERSONALITY DISORDER [None]
  - RENAL IMPAIRMENT [None]
  - TOOTH DISORDER [None]
